FAERS Safety Report 20309352 (Version 1)
Quarter: 2022Q1

REPORT INFORMATION
  Report Type: Spontaneous
  Country: US (occurrence: None)
  Receive Date: 20220107
  Receipt Date: 20220107
  Transmission Date: 20220423
  Serious: Yes (Other)
  Sender: FDA-Public Use
  Company Number: None

PATIENT
  Age: 43 Year
  Sex: Female
  Weight: 67.5 kg

DRUGS (1)
  1. SPRINTEC [Suspect]
     Active Substance: ETHINYL ESTRADIOL\NORGESTIMATE
     Indication: Heavy menstrual bleeding
     Dosage: FREQUENCY : AT BEDTIME;?
     Route: 048
     Dates: start: 20211226, end: 20220106

REACTIONS (3)
  - Mood swings [None]
  - Irritability [None]
  - Anger [None]

NARRATIVE: CASE EVENT DATE: 20220106
